FAERS Safety Report 8327936-3 (Version None)
Quarter: 2012Q2

REPORT INFORMATION
  Report Type: 
  Country: None (occurrence: None)
  Receive Date: 20120502
  Receipt Date: 20120425
  Transmission Date: 20120825
  Serious: Yes (Hospitalization)
  Sender: FDA-Public Use
  Company Number: DE-UCBSA-039746

PATIENT
  Sex: Female

DRUGS (3)
  1. VIMPAT [Suspect]
  2. VALPROATE SODIUM [Concomitant]
  3. KEPPRA [Concomitant]

REACTIONS (1)
  - GRAND MAL CONVULSION [None]
